FAERS Safety Report 4685951-5 (Version None)
Quarter: 2005Q3

REPORT INFORMATION
  Report Type: 
  Country: None (occurrence: None)
  Receive Date: 20050606
  Receipt Date: 20050523
  Transmission Date: 20060218
  Serious: Yes (Hospitalization)
  Sender: FDA-Public Use
  Company Number: 200503982

PATIENT
  Age: 39 Year
  Sex: Female

DRUGS (1)
  1. BOTOX COSMETIC [Suspect]
     Indication: SKIN WRINKLING
     Dosage: 77 UNITS PRN IM
     Route: 030
     Dates: start: 20050301

REACTIONS (6)
  - CSF PROTEIN INCREASED [None]
  - DYSARTHRIA [None]
  - GUILLAIN-BARRE SYNDROME [None]
  - INFECTION [None]
  - MUSCULAR WEAKNESS [None]
  - PYREXIA [None]
